FAERS Safety Report 9504517 (Version 1)
Quarter: 2013Q1

REPORT INFORMATION
  Report Type: Spontaneous
  Country: US (occurrence: None)
  Receive Date: 20130225
  Receipt Date: 20130225
  Transmission Date: 20140127
  Serious: No
  Sender: FDA-Public Use
  Company Number: 367635

PATIENT
  Sex: 0

DRUGS (2)
  1. VICTOZA (LIRAGLUTIDE) SOLUTION FOR INJECTION, 6MG/ML [Suspect]
     Indication: TYPE 2 DIABETES MELLITUS
     Route: 058
     Dates: start: 20121218
  2. LEVEMIR FLEXPEN (INSULIN DETEMIR) SOLUTION FOR INJECTION, .0024 MOL/L [Concomitant]

REACTIONS (5)
  - Somnolence [None]
  - Incorrect dose administered [None]
  - Blood glucose increased [None]
  - Diarrhoea [None]
  - Blood glucose decreased [None]
